FAERS Safety Report 6266551-2 (Version None)
Quarter: 2009Q3

REPORT INFORMATION
  Report Type: 
  Country: None (occurrence: None)
  Receive Date: 20090710
  Receipt Date: 20090702
  Transmission Date: 20100115
  Serious: Yes (Other)
  Sender: FDA-Public Use
  Company Number: 2009SP009556

PATIENT
  Sex: Female

DRUGS (1)
  1. CLARITIN-D 24 HOUR [Suspect]
     Indication: HYPERSENSITIVITY
     Dosage: 10 MG; QD; PO
     Route: 048
     Dates: start: 20090427, end: 20090430

REACTIONS (3)
  - CONVULSION [None]
  - DYSARTHRIA [None]
  - NERVOUSNESS [None]
